FAERS Safety Report 7206542-8 (Version None)
Quarter: 2010Q4

REPORT INFORMATION
  Report Type: 
  Country: None (occurrence: None)
  Receive Date: 20101217
  Receipt Date: 20101201
  Transmission Date: 20110411
  Serious: Yes (Hospitalization)
  Sender: FDA-Public Use
  Company Number: 2010004083

PATIENT
  Age: 70 Year
  Sex: Male
  Weight: 80.6 kg

DRUGS (23)
  1. ERLOTINIB (TABLET) [Suspect]
     Indication: NON-SMALL CELL LUNG CANCER
     Dosage: 150 MG, QD, ORAL
     Route: 048
     Dates: start: 20100827, end: 20100923
  2. PEMETREXED (INJECTION FOR INFUSION) [Suspect]
     Indication: NON-SMALL CELL LUNG CANCER
     Dosage: 500 MG/M2, INTRAVENOUS
     Route: 042
     Dates: start: 20100827
  3. TERAZOSIN HCL [Concomitant]
  4. LOVASTATIN [Concomitant]
  5. ATENELOL [Concomitant]
  6. MVI (MULTIVITAMINS) [Concomitant]
  7. ASPIRIN [Concomitant]
  8. GABAPENTIN [Concomitant]
  9. CITALOPRAM [Concomitant]
  10. POTASSIUM CHLORIDE [Concomitant]
  11. ONDANSETRON [Concomitant]
  12. PROCHLORPERAZINE [Concomitant]
  13. DEXAMETHASONE [Concomitant]
  14. OXYCONTIN [Concomitant]
  15. OXYCODONE [Concomitant]
  16. IMODIUM [Concomitant]
  17. LOMOTIL [Concomitant]
  18. MIRALAX [Concomitant]
  19. DOXICYCLINE [Concomitant]
  20. TUMS (CALCIUM CARBONATE) [Concomitant]
  21. CYCLOBENZAPRINE [Concomitant]
  22. LACTAID (TILACTASE) [Concomitant]
  23. TYLENOL PM [Concomitant]

REACTIONS (7)
  - DEHYDRATION [None]
  - DYSPNOEA [None]
  - FEBRILE NEUTROPENIA [None]
  - HYPOXIA [None]
  - NEUTROPHIL COUNT DECREASED [None]
  - PLATELET COUNT DECREASED [None]
  - WHITE BLOOD CELL COUNT DECREASED [None]
